FAERS Safety Report 10204012 (Version 1)
Quarter: 2014Q2

REPORT INFORMATION
  Report Type: Spontaneous
  Country: JP (occurrence: JP)
  Receive Date: 20140529
  Receipt Date: 20140529
  Transmission Date: 20141212
  Serious: Yes (Death)
  Sender: FDA-Public Use
  Company Number: JP-MALLINCKRODT-T201402301

PATIENT
  Age: 46 Year
  Sex: Female

DRUGS (7)
  1. METHADONE [Suspect]
     Indication: CANCER PAIN
     Dosage: 5 MG, (15 MG DAILY DOSE)
     Route: 048
     Dates: start: 20140303, end: 20140403
  2. OXINORM [Concomitant]
     Dosage: 5-10 MG, PRN
     Route: 048
     Dates: start: 20140302, end: 20140403
  3. MORPHINE [Concomitant]
     Dosage: 0.8 MG, PRN
     Route: 058
     Dates: start: 20140404, end: 20140405
  4. REBAMIPIDE [Concomitant]
     Dosage: 300 MG, UNK
     Route: 048
     Dates: end: 20140404
  5. LOXOROFEN [Concomitant]
     Dosage: 300 MG, UNK
     Route: 048
     Dates: end: 20140404
  6. OMEPRAZOLE [Concomitant]
     Dosage: 20 MG, UNK
     Route: 048
     Dates: end: 20140404
  7. LOXONIN [Concomitant]
     Dosage: 100 MG, UNK
     Route: 062
     Dates: end: 20140404

REACTIONS (1)
  - Retroperitoneal cancer [Fatal]
